FAERS Safety Report 24048735 (Version 2)
Quarter: 2024Q3

REPORT INFORMATION
  Report Type: Spontaneous
  Country: AT (occurrence: AT)
  Receive Date: 20240704
  Receipt Date: 20240905
  Transmission Date: 20241017
  Serious: Yes (Other)
  Sender: JOHNSON AND JOHNSON
  Company Number: AT-JNJFOC-20240676140

PATIENT
  Age: 53 Year
  Sex: Male

DRUGS (1)
  1. TECVAYLI [Suspect]
     Active Substance: TECLISTAMAB-CQYV
     Indication: Plasma cell myeloma
     Route: 065

REACTIONS (9)
  - Pneumonia bacterial [Unknown]
  - Pseudomonas infection [Unknown]
  - Haemophilus infection [Unknown]
  - Confusional state [Unknown]
  - Parainfluenzae virus infection [Unknown]
  - Pyrexia [Unknown]
  - Back pain [Unknown]
  - Rhinovirus infection [Unknown]
  - COVID-19 [Unknown]
